FAERS Safety Report 4906125-6 (Version None)
Quarter: 2006Q1

REPORT INFORMATION
  Report Type: 
  Country: None (occurrence: None)
  Receive Date: 20060207
  Receipt Date: 20060207
  Transmission Date: 20060701
  Serious: Yes (Hospitalization, Other)
  Sender: FDA-Public Use
  Company Number: None

PATIENT
  Sex: Female
  Weight: 76.3 kg

DRUGS (1)
  1. LIPOSOMAL DOXORUBICIN D0XIL) [Suspect]
     Indication: DIFFUSE LARGE B-CELL LYMPHOMA
     Dosage: 5.6 MG
     Route: 042
     Dates: start: 20060126, end: 20060126

REACTIONS (2)
  - CHEST PAIN [None]
  - DYSPNOEA [None]
